FAERS Safety Report 7032788-8 (Version None)
Quarter: 2010Q4

REPORT INFORMATION
  Report Type: 
  Country: None (occurrence: None)
  Receive Date: 20101007
  Receipt Date: 20100930
  Transmission Date: 20110411
  Serious: Yes (Other)
  Sender: FDA-Public Use
  Company Number: IT-ABBOTT-10P-083-0671596-00

PATIENT
  Sex: Female

DRUGS (1)
  1. KLACID [Suspect]
     Indication: CYSTITIS
     Dosage: 1000 MG, 1 DAY
     Route: 048
     Dates: start: 20100909, end: 20100910

REACTIONS (4)
  - ERYTHEMA [None]
  - FACE OEDEMA [None]
  - PRURITUS [None]
  - THROAT TIGHTNESS [None]
